FAERS Safety Report 8877006 (Version 2)
Quarter: 2012Q4

REPORT INFORMATION
  Report Type: 
  Country: US (occurrence: US)
  Receive Date: 20121030
  Receipt Date: 20121213
  Transmission Date: 20130627
  Serious: Yes (Death, Hospitalization)
  Sender: FDA-Public Use
  Company Number: US-BRISTOL-MYERS SQUIBB COMPANY-17081936

PATIENT
  Age: 66 Year
  Sex: Female

DRUGS (1)
  1. ORENCIA [Suspect]
     Dosage: Last dose:02-Oct-2012; Total: 7
25/4,9/5-1M46958;7/6-2C77549,5/7-1M48156,4/9-2E71610,2/10-2E71609
     Dates: start: 20120409

REACTIONS (1)
  - Sepsis [Fatal]
